FAERS Safety Report 8312270-8 (Version None)
Quarter: 2012Q2

REPORT INFORMATION
  Report Type: 
  Country: None (occurrence: None)
  Receive Date: 20120425
  Receipt Date: 20120412
  Transmission Date: 20120825
  Serious: Yes (Hospitalization, Other)
  Sender: FDA-Public Use
  Company Number: CA-ROCHE-GNE303566

PATIENT
  Sex: Female
  Weight: 63.969 kg

DRUGS (2)
  1. AMPICILLIN [Concomitant]
     Indication: PRODUCT USED FOR UNKNOWN INDICATION
  2. XOLAIR [Suspect]
     Indication: ASTHMA
     Dosage: 300 MG, 1/MONTH
     Route: 058
     Dates: start: 20060308

REACTIONS (11)
  - ORAL HERPES [None]
  - WHEEZING [None]
  - RHINORRHOEA [None]
  - SEASONAL ALLERGY [None]
  - NASAL CONGESTION [None]
  - HYPERSENSITIVITY [None]
  - DYSPNOEA [None]
  - LACRIMATION INCREASED [None]
  - PNEUMONIA [None]
  - SNEEZING [None]
  - ASTHMATIC CRISIS [None]
